FAERS Safety Report 25013515 (Version 1)
Quarter: 2025Q1

REPORT INFORMATION
  Report Type: Spontaneous
  Country: FR (occurrence: FR)
  Receive Date: 20250226
  Receipt Date: 20250226
  Transmission Date: 20250409
  Serious: Yes (Hospitalization)
  Sender: CHEPLAPHARM
  Company Number: None

PATIENT
  Age: 56 Year
  Sex: Female
  Weight: 70 kg

DRUGS (30)
  1. OLANZAPINE [Suspect]
     Active Substance: OLANZAPINE
     Indication: Psychotic disorder
     Dosage: 7.5 MG/DAY?DAILY DOSE: 7.5 MILLIGRAM
     Route: 048
     Dates: start: 20181205
  2. OLANZAPINE [Suspect]
     Active Substance: OLANZAPINE
     Indication: Anxiety
     Dosage: 7.5 MG/DAY?DAILY DOSE: 7.5 MILLIGRAM
     Route: 048
     Dates: start: 20181205
  3. OLANZAPINE [Suspect]
     Active Substance: OLANZAPINE
     Indication: Depression
     Dosage: 7.5 MG/DAY?DAILY DOSE: 7.5 MILLIGRAM
     Route: 048
     Dates: start: 20181205
  4. OLANZAPINE [Suspect]
     Active Substance: OLANZAPINE
     Indication: Delirium
     Dosage: 7.5 MG/DAY?DAILY DOSE: 7.5 MILLIGRAM
     Route: 048
     Dates: start: 20181205
  5. OLANZAPINE [Suspect]
     Active Substance: OLANZAPINE
     Indication: Psychotic disorder
     Route: 048
     Dates: start: 202001
  6. OLANZAPINE [Suspect]
     Active Substance: OLANZAPINE
     Indication: Anxiety
     Route: 048
     Dates: start: 202001
  7. OLANZAPINE [Suspect]
     Active Substance: OLANZAPINE
     Indication: Depression
     Route: 048
     Dates: start: 202001
  8. OLANZAPINE [Suspect]
     Active Substance: OLANZAPINE
     Indication: Delirium
     Route: 048
     Dates: start: 202001
  9. OLANZAPINE [Suspect]
     Active Substance: OLANZAPINE
     Indication: Psychotic disorder
     Route: 048
     Dates: start: 202002
  10. OLANZAPINE [Suspect]
     Active Substance: OLANZAPINE
     Indication: Anxiety
     Route: 048
     Dates: start: 202002
  11. OLANZAPINE [Suspect]
     Active Substance: OLANZAPINE
     Indication: Depression
     Route: 048
     Dates: start: 202002
  12. OLANZAPINE [Suspect]
     Active Substance: OLANZAPINE
     Indication: Delirium
     Route: 048
     Dates: start: 202002
  13. OLANZAPINE [Suspect]
     Active Substance: OLANZAPINE
     Indication: Psychotic disorder
     Dosage: IN THE EVENING?DAILY DOSE: 12.5 MILLIGRAM
     Route: 048
     Dates: start: 202104
  14. OLANZAPINE [Suspect]
     Active Substance: OLANZAPINE
     Indication: Anxiety
     Dosage: IN THE EVENING?DAILY DOSE: 12.5 MILLIGRAM
     Route: 048
     Dates: start: 202104
  15. OLANZAPINE [Suspect]
     Active Substance: OLANZAPINE
     Indication: Depression
     Dosage: IN THE EVENING?DAILY DOSE: 12.5 MILLIGRAM
     Route: 048
     Dates: start: 202104
  16. OLANZAPINE [Suspect]
     Active Substance: OLANZAPINE
     Indication: Delirium
     Dosage: IN THE EVENING?DAILY DOSE: 12.5 MILLIGRAM
     Route: 048
     Dates: start: 202104
  17. OLANZAPINE [Suspect]
     Active Substance: OLANZAPINE
     Indication: Psychotic disorder
     Route: 048
     Dates: start: 20210621
  18. OLANZAPINE [Suspect]
     Active Substance: OLANZAPINE
     Indication: Anxiety
     Route: 048
     Dates: start: 20210621
  19. OLANZAPINE [Suspect]
     Active Substance: OLANZAPINE
     Indication: Depression
     Route: 048
     Dates: start: 20210621
  20. OLANZAPINE [Suspect]
     Active Substance: OLANZAPINE
     Indication: Delirium
     Route: 048
     Dates: start: 20210621
  21. VENLAFAXINE [Suspect]
     Active Substance: VENLAFAXINE HYDROCHLORIDE
     Indication: Depression
     Dosage: DAILY DOSE: 112.5 MILLIGRAM
     Route: 048
     Dates: start: 20190716
  22. VENLAFAXINE [Suspect]
     Active Substance: VENLAFAXINE HYDROCHLORIDE
     Indication: Depression
     Dosage: DAILY DOSE: 150 MILLIGRAM
     Route: 048
     Dates: start: 20210621
  23. VENLAFAXINE [Suspect]
     Active Substance: VENLAFAXINE HYDROCHLORIDE
     Indication: Depression
     Dosage: DAILY DOSE: 112.5 MILLIGRAM
     Route: 048
     Dates: start: 20211013
  24. Seropram [Concomitant]
     Indication: Constipation
     Dosage: DAILY DOSE: 10 MILLIGRAM
  25. RISPERIDONE [Concomitant]
     Active Substance: RISPERIDONE
     Indication: Impatience
     Dosage: DAILY DOSE: 4 MILLIGRAM
  26. RISPERIDONE [Concomitant]
     Active Substance: RISPERIDONE
     Indication: Drug intolerance
     Dosage: DAILY DOSE: 4 MILLIGRAM
  27. VALIUM [Concomitant]
     Active Substance: DIAZEPAM
     Indication: Anxiety
     Dosage: DAILY DOSE: 10 MILLIGRAM
     Dates: start: 202002
  28. VALIUM [Concomitant]
     Active Substance: DIAZEPAM
     Indication: Anxiety
     Dosage: DAILY DOSE: 20 MILLIGRAM
     Dates: start: 20240320
  29. VALIUM [Concomitant]
     Active Substance: DIAZEPAM
     Indication: Anxiety
     Dosage: SOMETIMES UP TO 30 MG/DAY?DAILY DOSE: 30 MILLIGRAM
     Dates: start: 20241016
  30. VALIUM [Concomitant]
     Active Substance: DIAZEPAM
     Indication: Anxiety
     Dosage: DAILY DOSE: 5 MILLIGRAM

REACTIONS (2)
  - Hyponatraemia [Recovered/Resolved]
  - Polydipsia psychogenic [Not Recovered/Not Resolved]

NARRATIVE: CASE EVENT DATE: 20210101
